FAERS Safety Report 4830387-7 (Version None)
Quarter: 2005Q4

REPORT INFORMATION
  Report Type: 
  Country: None (occurrence: None)
  Receive Date: 20051117
  Receipt Date: 20051027
  Transmission Date: 20060501
  Serious: Yes (Other)
  Sender: FDA-Public Use
  Company Number: PHEH2005US11988

PATIENT
  Age: 66 Year
  Sex: Female

DRUGS (5)
  1. ZOMETA [Suspect]
     Indication: METASTASES TO BONE
     Dosage: 4 MG EVERY 4 WEEKS
     Dates: start: 20020131, end: 20050616
  2. FEMARA [Concomitant]
     Indication: BREAST CANCER METASTATIC
     Dates: start: 20010425, end: 20030301
  3. FASLODEX [Concomitant]
     Dates: start: 20030301, end: 20040201
  4. TAMOXIFEN [Concomitant]
     Dates: start: 20040202, end: 20040301
  5. TAXOL [Concomitant]
     Dosage: 100MG/WK X3,1WK OFF X18 CYCLES
     Dates: start: 20040401, end: 20050825

REACTIONS (3)
  - ORAL SOFT TISSUE DISORDER [None]
  - OSTEONECROSIS [None]
  - PAIN IN JAW [None]
